FAERS Safety Report 4685383-X (Version None)
Quarter: 2005Q2

REPORT INFORMATION
  Report Type: 
  Country: None (occurrence: None)
  Receive Date: 20050608
  Receipt Date: 20041203
  Transmission Date: 20051028
  Serious: Yes (Hospitalization)
  Sender: FDA-Public Use
  Company Number: GB-GLAXOSMITHKLINE-B0359556A

PATIENT
  Sex: Male

DRUGS (4)
  1. PAROXETINE HCL [Suspect]
     Route: 065
     Dates: end: 20020101
  2. PARACETAMOL [Suspect]
     Route: 065
  3. IBUPROFEN [Suspect]
     Route: 065
  4. PREDNISOLONE [Suspect]
     Route: 065

REACTIONS (7)
  - ABNORMAL DREAMS [None]
  - COMPLETED SUICIDE [None]
  - DISTURBANCE IN ATTENTION [None]
  - DRUG WITHDRAWAL SYNDROME [None]
  - IRRITABILITY [None]
  - NIGHTMARE [None]
  - OVERDOSE [None]
